FAERS Safety Report 8015476-0 (Version None)
Quarter: 2011Q4

REPORT INFORMATION
  Report Type: 
  Country: None (occurrence: None)
  Receive Date: 20111223
  Receipt Date: 20111216
  Transmission Date: 20120403
  Serious: Yes (Hospitalization)
  Sender: FDA-Public Use
  Company Number: 2011ST000538

PATIENT
  Age: 19 Year
  Sex: Female

DRUGS (1)
  1. ADAGEN [Suspect]
     Indication: PRODUCT USED FOR UNKNOWN INDICATION
     Dosage: IM
     Route: 030
     Dates: start: 19940101

REACTIONS (1)
  - URTICARIA [None]
